FAERS Safety Report 8125530-0 (Version None)
Quarter: 2012Q1

REPORT INFORMATION
  Report Type: 
  Country: None (occurrence: None)
  Receive Date: 20120206
  Receipt Date: 20120127
  Transmission Date: 20120608
  Serious: Yes (Disabling, Other)
  Sender: FDA-Public Use
  Company Number: AUR-APL-2012-00691

PATIENT
  Age: 85 Year
  Sex: Female
  Weight: 57 kg

DRUGS (15)
  1. ISOSORBIDE MONONITRATE [Concomitant]
  2. LACTULOSE [Concomitant]
  3. IBANDRONIC ACID (IBANDRONIC ACID) [Concomitant]
  4. LANSOPRAZOLE [Concomitant]
  5. DIGOXIN [Concomitant]
  6. FUROSEMIDE [Concomitant]
  7. METFORMIN HCL [Suspect]
     Indication: TYPE 2 DIABETES MELLITUS
     Dosage: 2 DOSAGE FORMS (2 DOSAGE FORMS, 1 IN 1 D), ORAL
     Route: 048
     Dates: start: 20111024, end: 20111205
  8. NICORANDIL (NICORANDIL) [Concomitant]
  9. PHARACEUTICAL IDENTITY CANESTAN (CLOTRIMAZOLE) [Concomitant]
  10. LOSARTAN POTASSIUM [Concomitant]
  11. WARFARIN SODIUM [Concomitant]
  12. ZAPAIN (PANADEINE) [Concomitant]
  13. LEVOTHYROXINE SODIUM [Concomitant]
  14. BISPROLOL (BISOPROLOL) [Concomitant]
  15. SPIRONOLACTONE [Concomitant]

REACTIONS (1)
  - CUTANEOUS VASCULITIS [None]
